FAERS Safety Report 9271185 (Version 1)
Quarter: 2013Q2

REPORT INFORMATION
  Report Type: Spontaneous
  Country: AU (occurrence: AU)
  Receive Date: 20130506
  Receipt Date: 20130506
  Transmission Date: 20140414
  Serious: Yes (Death, Hospitalization)
  Sender: FDA-Public Use
  Company Number: PHHY2013AU043579

PATIENT
  Age: 83 Year
  Sex: Female

DRUGS (1)
  1. ACLASTA [Suspect]
     Indication: OSTEOPOROSIS
     Dosage: 5 MG
     Route: 042
     Dates: start: 20130404

REACTIONS (8)
  - Death [Fatal]
  - Vomiting [Unknown]
  - Dysstasia [Unknown]
  - Hallucination [Unknown]
  - Pain [Unknown]
  - Abdominal pain upper [Unknown]
  - Dizziness [Unknown]
  - Influenza like illness [Unknown]
